FAERS Safety Report 8096970-3 (Version None)
Quarter: 2012Q1

REPORT INFORMATION
  Report Type: 
  Country: None (occurrence: None)
  Receive Date: 20120129
  Receipt Date: 20111118
  Transmission Date: 20120608
  Serious: No
  Sender: FDA-Public Use
  Company Number: US-ABBOTT-11P-163-0842679-00

PATIENT
  Sex: Female
  Weight: 56.296 kg

DRUGS (12)
  1. PERCOCET [Concomitant]
     Indication: OSTEOPOROSIS
  2. HUMIRA [Suspect]
     Indication: CROHN'S DISEASE
     Dates: start: 20110601
  3. UNKNOWN MEDICATION [Concomitant]
     Indication: CROHN'S DISEASE
  4. UNKNOWN MEDICATION [Concomitant]
     Indication: GASTROOESOPHAGEAL REFLUX DISEASE
  5. TRAZODONE HCL [Concomitant]
     Indication: PRODUCT USED FOR UNKNOWN INDICATION
  6. SINGULAIR [Concomitant]
     Indication: PRODUCT USED FOR UNKNOWN INDICATION
  7. CYCLOBENZAPRINE [Concomitant]
     Indication: PRODUCT USED FOR UNKNOWN INDICATION
  8. LANSOPRAZOLE [Concomitant]
     Indication: PRODUCT USED FOR UNKNOWN INDICATION
  9. HUMIRA [Suspect]
     Route: 058
     Dates: start: 20110801
  10. AZATHIOPRINE [Concomitant]
     Indication: PRODUCT USED FOR UNKNOWN INDICATION
  11. CARISOPRODOL [Concomitant]
     Indication: BACK PAIN
  12. FISH OIL [Concomitant]
     Indication: PRODUCT USED FOR UNKNOWN INDICATION

REACTIONS (3)
  - DYSPHAGIA [None]
  - INJECTION SITE PAIN [None]
  - OESOPHAGEAL OBSTRUCTION [None]
